FAERS Safety Report 5780027-8 (Version None)
Quarter: 2008Q2

REPORT INFORMATION
  Report Type: 
  Country: None (occurrence: None)
  Receive Date: 20080620
  Receipt Date: 20080612
  Transmission Date: 20081010
  Serious: Yes (Congenital Anomaly)
  Sender: FDA-Public Use
  Company Number: JP-BRISTOL-MYERS SQUIBB COMPANY-14196521

PATIENT
  Sex: Male
  Weight: 3 kg

DRUGS (5)
  1. ABILIFY [Suspect]
     Dosage: 01JUN07-07JUN07: 6MG QD 08JUN07-08JUL07: 12MG QD 09JUL07-10MAR08: 6MG QD
     Route: 064
     Dates: start: 20070601, end: 20080310
  2. DEPAS [Concomitant]
     Dates: start: 20040709, end: 20070805
  3. CHLORPROMAZINE HCL [Concomitant]
     Dosage: DOSAGE FORM - TABLET
     Route: 064
     Dates: end: 20080310
  4. ETIZOLAM [Concomitant]
     Dosage: DOSAGE FORM - TABLET
     Route: 064
     Dates: start: 20070806, end: 20080310
  5. RISPERDAL [Concomitant]
     Route: 064
     Dates: start: 20071001, end: 20080310

REACTIONS (3)
  - CARDIAC VALVE DISEASE [None]
  - DRUG EXPOSURE DURING PREGNANCY [None]
  - VENTRICULAR SEPTAL DEFECT [None]
